FAERS Safety Report 8797118 (Version 1)
Quarter: 2012Q4

REPORT INFORMATION
  Report Type: 
  Country: CA (occurrence: CA)
  Receive Date: 20120919
  Receipt Date: 20120919
  Transmission Date: 20130627
  Serious: Yes (Other)
  Sender: FDA-Public Use
  Company Number: CA-ROCHE-1130355

PATIENT
  Sex: Male
  Weight: 140 kg

DRUGS (1)
  1. RITUXAN [Suspect]
     Indication: WEGENER^S GRANULOMATOSIS
     Route: 065

REACTIONS (1)
  - Fluid retention [Unknown]
